FAERS Safety Report 10228788 (Version 1)
Quarter: 2014Q2

REPORT INFORMATION
  Report Type: Spontaneous
  Country: FR (occurrence: FR)
  Receive Date: 20140610
  Receipt Date: 20140610
  Transmission Date: 20141212
  Serious: Yes (Hospitalization, Other)
  Sender: FDA-Public Use
  Company Number: FR-ASTRAZENECA-2014SE39938

PATIENT
  Age: 24529 Day
  Sex: Male

DRUGS (20)
  1. ZESTRIL [Suspect]
     Indication: HYPERTENSION
     Route: 048
     Dates: end: 20140422
  2. VISIPAQUE [Suspect]
     Dosage: 90 ML (320 MG OF IODINE/ML)
     Route: 042
     Dates: start: 20140418, end: 20140418
  3. PROFENID [Suspect]
     Indication: PAIN
     Dosage: 200MG TWO TIMES
     Route: 048
     Dates: start: 20140418
  4. PROFENID [Suspect]
     Indication: OSTEOARTHRITIS
     Dosage: 200MG TWO TIMES
     Route: 048
     Dates: start: 20140418
  5. JANUMET [Concomitant]
     Dosage: 50MG/ 1000 MG TWICE DAILY
     Route: 048
     Dates: end: 20140419
  6. SIMVASTATINE [Concomitant]
     Route: 048
     Dates: end: 20140422
  7. GLIMEPIRIDE [Concomitant]
  8. GLIMEPIRIDE [Concomitant]
  9. LANTUS [Concomitant]
  10. EUPANTOL [Concomitant]
  11. XARELTO [Concomitant]
  12. SPIRIVA [Concomitant]
  13. SERETIDE [Concomitant]
  14. DAFALGAN CODEIN [Concomitant]
  15. TRANSULOSE [Concomitant]
  16. LYRICA [Concomitant]
  17. ATROVENT [Concomitant]
     Dosage: 2 TIMES DAILY (FOR 15 DAYS)
  18. BRICANYL [Concomitant]
     Dosage: 4 TIMES DAILY (FOR 15 DAYS)
  19. STILNOX [Concomitant]
  20. ROCEPHINE [Concomitant]
     Dosage: (4 WEEKS)
     Dates: start: 20140422

REACTIONS (5)
  - Renal failure acute [Recovered/Resolved]
  - Anuria [Recovered/Resolved]
  - Rhabdomyolysis [Recovered/Resolved]
  - Hypoglycaemia [Recovering/Resolving]
  - Sinus tachycardia [Unknown]
